FAERS Safety Report 6921543-2 (Version None)
Quarter: 2010Q3

REPORT INFORMATION
  Report Type: 
  Country: None (occurrence: None)
  Receive Date: 20100812
  Receipt Date: 20100802
  Transmission Date: 20110219
  Serious: Yes (Hospitalization)
  Sender: FDA-Public Use
  Company Number: PHHY2010US50784

PATIENT
  Sex: Male

DRUGS (2)
  1. EXJADE [Suspect]
     Indication: SICKLE CELL ANAEMIA
     Dosage: 1500 MG/DAY
     Route: 048
     Dates: start: 20100109
  2. EXJADE [Suspect]
     Indication: LYMPHOPROLIFERATIVE DISORDER

REACTIONS (1)
  - BRAIN OPERATION [None]
